FAERS Safety Report 22327272 (Version 1)
Quarter: 2023Q2

REPORT INFORMATION
  Report Type: Spontaneous
  Country: US (occurrence: US)
  Receive Date: 20230516
  Receipt Date: 20230516
  Transmission Date: 20230722
  Serious: No
  Sender: FDA-Public Use
  Company Number: US-RADIUS HEALTH INC.-2022US005132

PATIENT
  Age: 56 Year
  Sex: Female

DRUGS (1)
  1. TYMLOS [Suspect]
     Active Substance: ABALOPARATIDE
     Indication: Product used for unknown indication
     Dosage: 80MCG, DAILY
     Route: 058
     Dates: start: 202202

REACTIONS (7)
  - Gastrointestinal pain [Recovered/Resolved]
  - Hot flush [Unknown]
  - Cold sweat [Unknown]
  - Hypertension [Unknown]
  - Colorectal adenoma [Unknown]
  - Dizziness [Unknown]
  - Nausea [Recovered/Resolved]

NARRATIVE: CASE EVENT DATE: 20220701
